FAERS Safety Report 23743574 (Version 1)
Quarter: 2024Q2

REPORT INFORMATION
  Report Type: Spontaneous
  Country: FR (occurrence: FR)
  Receive Date: 20240415
  Receipt Date: 20240415
  Transmission Date: 20240716
  Serious: Yes (Death, Other)
  Sender: FDA-Public Use
  Company Number: None

PATIENT
  Age: 77 Year
  Sex: Female
  Weight: 60 kg

DRUGS (7)
  1. CYCLOPHOSPHAMIDE [Suspect]
     Active Substance: CYCLOPHOSPHAMIDE
     Indication: Adult T-cell lymphoma/leukaemia
     Dosage: 1222 MG, EVERY ONE DAY
     Route: 042
     Dates: start: 20240215, end: 20240215
  2. CYCLOPHOSPHAMIDE [Suspect]
     Active Substance: CYCLOPHOSPHAMIDE
     Dosage: 480 MG, EVERY ONE DAY
     Route: 042
     Dates: start: 20240209, end: 20240209
  3. DOXORUBICIN [Suspect]
     Active Substance: DOXORUBICIN
     Indication: Adult T-cell lymphoma/leukaemia
     Dosage: 82 MG, EVERY ONE DAY
     Route: 042
     Dates: start: 20240215, end: 20240215
  4. METHOTREXATE [Suspect]
     Active Substance: METHOTREXATE
     Indication: Adult T-cell lymphoma/leukaemia
     Dosage: 2450 MG, ONCE A DAY
     Route: 042
     Dates: start: 20240216, end: 20240216
  5. METHOTREXATE [Suspect]
     Active Substance: METHOTREXATE
     Dosage: 15 MG
     Route: 037
     Dates: start: 20240215, end: 20240215
  6. CYTARABINE [Suspect]
     Active Substance: CYTARABINE
     Indication: Adult T-cell lymphoma/leukaemia
     Dosage: 40 MG, EVERY ONE DAY
     Route: 037
     Dates: start: 20240215, end: 20240215
  7. VINCRISTINE SULFATE [Suspect]
     Active Substance: VINCRISTINE SULFATE
     Indication: Adult T-cell lymphoma/leukaemia
     Dosage: 2 MG, EVERY ONE DAY
     Route: 042
     Dates: start: 20240209, end: 20240209

REACTIONS (3)
  - Chemotherapeutic drug level increased [Fatal]
  - Renal failure [Fatal]
  - Pancytopenia [Fatal]

NARRATIVE: CASE EVENT DATE: 20240218
